FAERS Safety Report 8852316 (Version 1)
Quarter: 2012Q4

REPORT INFORMATION
  Report Type: 
  Country: US (occurrence: US)
  Receive Date: 20121022
  Receipt Date: 20121022
  Transmission Date: 20130627
  Serious: Yes (Hospitalization)
  Sender: FDA-Public Use
  Company Number: US-ASTRAZENECA-2012SE78376

PATIENT
  Age: 55 Year
  Sex: Female
  Weight: 81.6 kg

DRUGS (13)
  1. NEXIUM [Suspect]
     Route: 048
  2. MORPHINE [Suspect]
     Route: 048
  3. FENTANYL PATCH [Suspect]
     Indication: FIBROMYALGIA
     Dosage: 100 MCG/HR 2 PATCHES EVERY 3 DAYS
     Route: 062
  4. FENTANYL PATCH [Suspect]
     Indication: PAIN
     Dosage: 100 MCG/HR 2 PATCHES EVERY 3 DAYS
     Route: 062
  5. GABAPENTIN [Suspect]
     Indication: PAIN
     Route: 048
  6. ELAVIL [Suspect]
     Route: 065
  7. COZAAR [Suspect]
     Route: 065
  8. ZANAFLEX [Suspect]
     Indication: PAIN
     Route: 065
  9. PERCOCET [Suspect]
     Indication: PAIN
     Route: 048
  10. PREDNISONE [Concomitant]
     Indication: RHEUMATOID ARTHRITIS
     Route: 048
  11. PREDNISONE [Concomitant]
     Indication: RHEUMATOID ARTHRITIS
     Route: 048
  12. PREDNISONE [Concomitant]
     Indication: RHEUMATOID ARTHRITIS
     Route: 048
  13. PREDNISONE [Concomitant]
     Indication: RHEUMATOID ARTHRITIS
     Route: 048

REACTIONS (8)
  - Pain [Unknown]
  - Rheumatoid arthritis [Unknown]
  - Hyperhidrosis [Unknown]
  - Memory impairment [Unknown]
  - Headache [Unknown]
  - Lyme disease [Unknown]
  - Fibromyalgia [Unknown]
  - Drug ineffective [Unknown]
